FAERS Safety Report 8607970-6 (Version None)
Quarter: 2012Q3

REPORT INFORMATION
  Report Type: 
  Country: None (occurrence: None)
  Receive Date: 20120806
  Receipt Date: 20120725
  Transmission Date: 20120928
  Serious: Yes (Other)
  Sender: FDA-Public Use
  Company Number: ACO_30844_2012

PATIENT
  Sex: Male
  Weight: 61.2 kg

DRUGS (12)
  1. LORCET /00607101/ (HYDROCODONE BITARTRATE, PARACETAMOL) [Concomitant]
  2. ERGOCALCIFEROL [Concomitant]
  3. ZANAFLEX [Concomitant]
  4. COPAXONE [Concomitant]
  5. KLONOPIN [Concomitant]
  6. AMPYRA [Suspect]
     Indication: GAIT DISTURBANCE
     Dosage: 10 MG, Q 12 HRS
     Dates: start: 20120101
  7. LISINOPRIL [Concomitant]
  8. PROMETHAZINE [Concomitant]
  9. AMBIEN [Concomitant]
  10. APPETITE STIMULANTS [Concomitant]
  11. EFFEXOR [Concomitant]
  12. STOOL SOFTENER (DOCUSATE SODIUM) [Concomitant]

REACTIONS (13)
  - DEPRESSION [None]
  - CONDITION AGGRAVATED [None]
  - MULTIPLE SCLEROSIS RELAPSE [None]
  - FAECAL INCONTINENCE [None]
  - FEELING OF DESPAIR [None]
  - AMNESIA [None]
  - FATIGUE [None]
  - MULTIPLE SCLEROSIS [None]
  - AGITATION [None]
  - BALANCE DISORDER [None]
  - MALIGNANT MELANOMA [None]
  - URINARY RETENTION [None]
  - ANGER [None]
